FAERS Safety Report 7551487-7 (Version None)
Quarter: 2011Q2

REPORT INFORMATION
  Report Type: 
  Country: None (occurrence: None)
  Receive Date: 20110616
  Receipt Date: 20110606
  Transmission Date: 20111010
  Serious: Yes (Hospitalization)
  Sender: FDA-Public Use
  Company Number: US-JNJFOC-20100208501

PATIENT
  Sex: Male
  Weight: 77.11 kg

DRUGS (5)
  1. FENTANYL-100 [Suspect]
     Route: 048
  2. METHAMPHETAMINE HYDROCHLORIDE [Concomitant]
     Route: 065
  3. FENTANYL-100 [Suspect]
     Indication: DRUG ABUSER
     Route: 048
  4. ALPRAZOLAM [Suspect]
     Indication: DRUG ABUSER
     Dosage: 6-8 MG
     Route: 065
  5. ALPRAZOLAM [Suspect]
     Dosage: 8-10MG.
     Route: 065

REACTIONS (13)
  - MIOSIS [None]
  - SUICIDE ATTEMPT [None]
  - INTENTIONAL DRUG MISUSE [None]
  - BRADYCARDIA [None]
  - UNRESPONSIVE TO STIMULI [None]
  - RESPIRATORY RATE DECREASED [None]
  - TOXICITY TO VARIOUS AGENTS [None]
  - FEELING ABNORMAL [None]
  - DRUG DIVERSION [None]
  - SOMNOLENCE [None]
  - DIZZINESS [None]
  - DEPRESSED LEVEL OF CONSCIOUSNESS [None]
  - MENTAL STATUS CHANGES [None]
